FAERS Safety Report 13476096 (Version 1)
Quarter: 2017Q2

REPORT INFORMATION
  Report Type: Spontaneous
  Country: US (occurrence: US)
  Receive Date: 20170424
  Receipt Date: 20170424
  Transmission Date: 20170830
  Serious: Yes (Other)
  Sender: FDA-Public Use
  Company Number: None

PATIENT
  Age: 19 Year
  Sex: Female
  Weight: 57.2 kg

DRUGS (1)
  1. 99M TC-MDP [Suspect]
     Active Substance: TECHNETIUM TC-99M METHYLENE DIPHOSPHONATE

REACTIONS (2)
  - Product preparation error [None]
  - Wrong drug administered [None]

NARRATIVE: CASE EVENT DATE: 20170328
